FAERS Safety Report 14238880 (Version 2)
Quarter: 2018Q1

REPORT INFORMATION
  Report Type: Spontaneous
  Country: IT (occurrence: IT)
  Receive Date: 20171130
  Receipt Date: 20180313
  Transmission Date: 20180508
  Serious: No
  Sender: FDA-Public Use
  Company Number: IT-LUPIN PHARMACEUTICALS INC.-2017-06634

PATIENT
  Age: 45 Year
  Sex: Female

DRUGS (3)
  1. QUETIAPINE FUMARATE EXTENDED-RELEASE TABLETS [Suspect]
     Active Substance: QUETIAPINE FUMARATE
     Indication: BIPOLAR II DISORDER
     Dosage: 300 MG, QD
     Route: 065
  2. QUETIAPINE FUMARATE EXTENDED-RELEASE TABLETS [Suspect]
     Active Substance: QUETIAPINE FUMARATE
     Dosage: 800 MG, QD
     Route: 065
  3. QUETIAPINE FUMARATE EXTENDED-RELEASE TABLETS [Suspect]
     Active Substance: QUETIAPINE FUMARATE
     Dosage: DOSE INCREASED
     Route: 065

REACTIONS (1)
  - Hypomania [Recovered/Resolved]
